FAERS Safety Report 25755068 (Version 1)
Quarter: 2025Q3

REPORT INFORMATION
  Report Type: Spontaneous
  Country: CN (occurrence: CN)
  Receive Date: 20250903
  Receipt Date: 20250903
  Transmission Date: 20251020
  Serious: Yes (Other)
  Sender: ROCHE
  Company Number: CN-BoehringerIngelheim-2025-BI-091665

PATIENT
  Age: 82 Year
  Sex: Female
  Weight: 75 kg

DRUGS (2)
  1. ALTEPLASE [Suspect]
     Active Substance: ALTEPLASE
     Indication: Cerebral infarction
     Route: 042
     Dates: start: 20250817, end: 20250817
  2. ALTEPLASE [Suspect]
     Active Substance: ALTEPLASE
     Route: 042
     Dates: start: 20250817, end: 20250817

REACTIONS (2)
  - Discoloured vomit [Recovering/Resolving]
  - Tongue haemorrhage [Recovering/Resolving]

NARRATIVE: CASE EVENT DATE: 20250817
